FAERS Safety Report 23399782 (Version 1)
Quarter: 2024Q1

REPORT INFORMATION
  Report Type: Spontaneous
  Country: US (occurrence: US)
  Receive Date: 20240114
  Receipt Date: 20240114
  Transmission Date: 20240409
  Serious: No
  Sender: FDA-Public Use
  Company Number: US-AMGEN-USASP2024006066

PATIENT
  Sex: Female

DRUGS (3)
  1. OTEZLA [Suspect]
     Active Substance: APREMILAST
     Indication: Product used for unknown indication
     Dosage: UNK UNK, QD
     Route: 065
  2. HUMIRA [Suspect]
     Active Substance: ADALIMUMAB
     Indication: Psoriatic arthropathy
     Dosage: 40 MILLIGRAM
     Route: 058
  3. HUMIRA [Suspect]
     Active Substance: ADALIMUMAB
     Dosage: UNK UNK, QD
     Route: 065

REACTIONS (8)
  - Dry skin [Unknown]
  - Frustration tolerance decreased [Unknown]
  - Nausea [Unknown]
  - Asthenia [Unknown]
  - Depression [Unknown]
  - Skin ulcer [Unknown]
  - Ulcer haemorrhage [Unknown]
  - Pruritus [Unknown]
